FAERS Safety Report 14656992 (Version 1)
Quarter: 2018Q1

REPORT INFORMATION
  Report Type: Spontaneous
  Country: US (occurrence: US)
  Receive Date: 20180319
  Receipt Date: 20180319
  Transmission Date: 20180509
  Serious: No
  Sender: FDA-Public Use
  Company Number: US-SA-2017SA259045

PATIENT
  Age: 64 Year
  Sex: Female

DRUGS (5)
  1. DIFLUPREDNATE [Concomitant]
     Active Substance: DIFLUPREDNATE
     Route: 065
  2. NIVOLUMAB [Concomitant]
     Active Substance: NIVOLUMAB
     Indication: METASTATIC MALIGNANT MELANOMA
     Dosage: NUMBER OF UNITS IN THE INTERVAL:2 WEEK
     Route: 042
     Dates: start: 201505
  3. TRIAMCINOLONE ACETONIDE. [Suspect]
     Active Substance: TRIAMCINOLONE ACETONIDE
     Indication: VITILIGO
     Dosage: TOPICAL TREATMENT ALTERNATING WITH TRIAMCINOLONE AND TACROLIMUS
     Route: 061
     Dates: start: 201510, end: 201511
  4. TACROLIMUS. [Suspect]
     Active Substance: TACROLIMUS
     Indication: VITILIGO
     Dosage: TOPICAL TREATMENT ALTERNATING WITH TRIAMCINOLONE AND TACROLIMUS
     Route: 061
     Dates: start: 201510, end: 201511
  5. IBUPROFEN. [Concomitant]
     Active Substance: IBUPROFEN
     Dosage: TIME INTERVAL : AS NECESSARY

REACTIONS (2)
  - Burning sensation [Unknown]
  - Pruritus [Unknown]
